FAERS Safety Report 23459707 (Version 1)
Quarter: 2024Q1

REPORT INFORMATION
  Report Type: Spontaneous
  Country: CN (occurrence: CN)
  Receive Date: 20240131
  Receipt Date: 20240131
  Transmission Date: 20240409
  Serious: Yes (Hospitalization, Other)
  Sender: FDA-Public Use
  Company Number: CN-EPICPHARMA-CN-2024EPCLIT00223

PATIENT
  Age: 50 Year
  Sex: Male

DRUGS (2)
  1. LIDOCAINE HYDROCHLORIDE [Suspect]
     Active Substance: LIDOCAINE HYDROCHLORIDE
     Indication: Local anaesthesia
     Route: 065
     Dates: start: 20200304
  2. EPINEPHRINE [Concomitant]
     Active Substance: EPINEPHRINE
     Indication: Local anaesthesia
     Dosage: (1:100,000)
     Route: 065
     Dates: start: 20200304

REACTIONS (2)
  - Arteriospasm coronary [Recovered/Resolved]
  - Acute myocardial infarction [Recovered/Resolved]

NARRATIVE: CASE EVENT DATE: 20200304
